FAERS Safety Report 7826033-0 (Version None)
Quarter: 2011Q4

REPORT INFORMATION
  Report Type: 
  Country: None (occurrence: None)
  Receive Date: 20111019
  Receipt Date: 20111017
  Transmission Date: 20120403
  Serious: Yes (Other)
  Sender: FDA-Public Use
  Company Number: FR-MERCK-1110FRA00070

PATIENT
  Age: 49 Year
  Sex: Female

DRUGS (8)
  1. TOPOTECAN HYDROCHLORIDE [Suspect]
     Indication: CERVIX CARCINOMA
     Route: 042
     Dates: start: 20110907, end: 20110909
  2. METHYLPREDNISOLONE SODIUM SUCCINATE [Suspect]
     Indication: PREMEDICATION
     Route: 042
     Dates: start: 20110906, end: 20110911
  3. CISPLATIN [Suspect]
     Indication: CERVIX CARCINOMA
     Route: 042
     Dates: start: 20110907, end: 20110908
  4. ACETAMINOPHEN [Suspect]
     Route: 048
  5. KETOPROFEN [Suspect]
     Route: 048
  6. ALIZAPRIDE HYDROCHLORIDE [Suspect]
     Indication: PREMEDICATION
     Route: 042
     Dates: start: 20110906
  7. EMEND [Suspect]
     Indication: PREMEDICATION
     Route: 048
     Dates: start: 20110906, end: 20110911
  8. TRAMADOL HCL [Suspect]
     Route: 048
     Dates: start: 20110906

REACTIONS (1)
  - THROMBOCYTOSIS [None]
